FAERS Safety Report 4997564-6 (Version None)
Quarter: 2006Q2

REPORT INFORMATION
  Report Type: 
  Country: None (occurrence: None)
  Receive Date: 20060509
  Receipt Date: 20051007
  Transmission Date: 20061013
  Serious: Yes (Hospitalization)
  Sender: FDA-Public Use
  Company Number: US-MERCK-0510USA06369

PATIENT
  Age: 74 Year
  Sex: Female
  Weight: 75 kg

DRUGS (4)
  1. VIOXX [Suspect]
     Indication: ARTHRITIS
     Route: 048
     Dates: start: 20011101, end: 20021101
  2. VIOXX [Suspect]
     Route: 048
     Dates: start: 20030901, end: 20040101
  3. ASPIRIN [Concomitant]
     Route: 065
  4. ESTROGENS (UNSPECIFIED) [Suspect]
     Route: 065

REACTIONS (6)
  - DEEP VEIN THROMBOSIS [None]
  - INJURY [None]
  - MOUTH ULCERATION [None]
  - OBESITY [None]
  - PULMONARY EMBOLISM [None]
  - RESPIRATORY FAILURE [None]
